FAERS Safety Report 4434265-7 (Version None)
Quarter: 2004Q3

REPORT INFORMATION
  Report Type: 
  Country: None (occurrence: None)
  Receive Date: 20040825
  Receipt Date: 20040810
  Transmission Date: 20050211
  Serious: Yes (Life-Threatening, Hospitalization, Other)
  Sender: FDA-Public Use
  Company Number: IE-2004-025206

PATIENT
  Age: 39 Year
  Sex: Female

DRUGS (4)
  1. BETAFERON [Suspect]
     Dosage: 2 MIU TO 4 MIU TITRATING, SUBCUTANEOUS
     Route: 058
     Dates: start: 20040426
  2. INDERAL [Concomitant]
  3. NUROFEN [Concomitant]
  4. NETHYLPREDNISOLONE [Concomitant]

REACTIONS (20)
  - ASTHENIA [None]
  - BACK PAIN [None]
  - BACTERIAL INFECTION [None]
  - BLISTER [None]
  - BRAIN ABSCESS [None]
  - COMA [None]
  - CUSHINGOID [None]
  - FASCIITIS [None]
  - GENERAL PHYSICAL HEALTH DETERIORATION [None]
  - HYPOTENSION [None]
  - INJECTION SITE HAEMORRHAGE [None]
  - INJECTION SITE NECROSIS [None]
  - INJECTION SITE REACTION [None]
  - MALAISE [None]
  - PLATELET COUNT DECREASED [None]
  - PURPURA [None]
  - RASH GENERALISED [None]
  - RENAL FAILURE ACUTE [None]
  - SKIN GRAFT FAILURE [None]
  - STREPTOCOCCAL SEPSIS [None]
